FAERS Safety Report 23122892 (Version 1)
Quarter: 2023Q4

REPORT INFORMATION
  Report Type: Other
  Country: US (occurrence: None)
  Receive Date: 20231030
  Receipt Date: 20231030
  Transmission Date: 20240110
  Serious: Yes (Hospitalization)
  Sender: FDA-Public Use
  Company Number: US-ROCHE-3442330

PATIENT
  Age: 50 Year
  Sex: Female
  Weight: 136.2 kg

DRUGS (22)
  1. OCREVUS [Suspect]
     Active Substance: OCRELIZUMAB
     Indication: Multiple sclerosis relapse
     Dosage: THEN 600 MG EVERY 24 WEEKS, DATE OF TREATMENT: /MAR/2023, 27/MAR/2021, 13/MAY/2021
     Route: 042
     Dates: start: 2021, end: 202303
  2. VALIUM [Suspect]
     Active Substance: DIAZEPAM
     Indication: Anxiety
     Dosage: ORAL PILL, AS NEEDED
     Route: 065
  3. MODAFINIL [Concomitant]
     Active Substance: MODAFINIL
     Indication: Narcolepsy
     Dosage: ORAL PILL 200 MG ONCE A DAY
  4. MODAFINIL [Concomitant]
     Active Substance: MODAFINIL
     Indication: Seizure
  5. GABAPENTIN [Concomitant]
     Active Substance: GABAPENTIN
     Indication: Neuralgia
  6. AMLODIPINE BESYLATE [Concomitant]
     Active Substance: AMLODIPINE BESYLATE
     Indication: Hypertension
  7. OLMESARTAN MEDOXOMIL [Concomitant]
     Active Substance: OLMESARTAN MEDOXOMIL
     Indication: Hypertension
  8. OXYBUTYNIN [Concomitant]
     Active Substance: OXYBUTYNIN
  9. VITAMIN C [Concomitant]
     Active Substance: ASCORBIC ACID
  10. ERGOCALCIFEROL [Concomitant]
     Active Substance: ERGOCALCIFEROL
  11. BUPROPION [Concomitant]
     Active Substance: BUPROPION
  12. OMEPRAZOLE [Concomitant]
     Active Substance: OMEPRAZOLE
     Indication: Gastrooesophageal reflux disease
  13. AMITRIPTYLINE [Concomitant]
     Active Substance: AMITRIPTYLINE
     Indication: Neuralgia
     Route: 065
  14. IBUPROFEN [Concomitant]
     Active Substance: IBUPROFEN
  15. TIZANIDINE [Concomitant]
     Active Substance: TIZANIDINE
     Indication: Muscle relaxant therapy
  16. PREDNISONE [Concomitant]
     Active Substance: PREDNISONE
  17. AMOXICILLIN\CLAVULANATE POTASSIUM [Concomitant]
     Active Substance: AMOXICILLIN\CLAVULANATE POTASSIUM
  18. ALBUTEROL [Concomitant]
     Active Substance: ALBUTEROL
  19. BETASERON [Concomitant]
     Active Substance: INTERFERON BETA-1B
  20. COPAXONE [Concomitant]
     Active Substance: GLATIRAMER ACETATE
  21. PROPRANOLOL [Concomitant]
     Active Substance: PROPRANOLOL HYDROCHLORIDE
  22. AMANTADINE [Concomitant]
     Active Substance: AMANTADINE

REACTIONS (10)
  - Dyspnoea [Recovered/Resolved]
  - Sciatica [Not Recovered/Not Resolved]
  - Sensory loss [Not Recovered/Not Resolved]
  - Intervertebral disc protrusion [Not Recovered/Not Resolved]
  - Back pain [Not Recovered/Not Resolved]
  - Amnesia [Not Recovered/Not Resolved]
  - Dysarthria [Not Recovered/Not Resolved]
  - Hypoaesthesia [Not Recovered/Not Resolved]
  - COVID-19 [Recovered/Resolved]
  - Joint instability [Not Recovered/Not Resolved]

NARRATIVE: CASE EVENT DATE: 20210101
